FAERS Safety Report 15145404 (Version 3)
Quarter: 2019Q2

REPORT INFORMATION
  Report Type: Spontaneous
  Country: US (occurrence: US)
  Receive Date: 20180713
  Receipt Date: 20190606
  Transmission Date: 20190711
  Serious: No
  Sender: FDA-Public Use
  Company Number: US-INTERCEPT-PMOCA2018000737

PATIENT
  Age: 71 Year
  Sex: Female

DRUGS (2)
  1. OCALIVA [Suspect]
     Active Substance: OBETICHOLIC ACID
     Indication: PRIMARY BILIARY CHOLANGITIS
     Dosage: 5 MG, QD
     Route: 048
     Dates: start: 20180507
  2. TRAMADOL. [Suspect]
     Active Substance: TRAMADOL

REACTIONS (14)
  - Confusional state [Unknown]
  - Memory impairment [Unknown]
  - Chromaturia [Unknown]
  - Rash [Unknown]
  - Hallucination [Unknown]
  - Constipation [Unknown]
  - Dizziness [Unknown]
  - Skin discolouration [Unknown]
  - Pain in extremity [Unknown]
  - Abdominal pain [Unknown]
  - Peripheral swelling [Unknown]
  - Product dose omission [Unknown]
  - Platelet count decreased [Unknown]
  - Diarrhoea [Unknown]

NARRATIVE: CASE EVENT DATE: 2018
